FAERS Safety Report 10153275 (Version 2)
Quarter: 2014Q2

REPORT INFORMATION
  Report Type: Spontaneous
  Country: BR (occurrence: BR)
  Receive Date: 20140505
  Receipt Date: 20140505
  Transmission Date: 20141212
  Serious: Yes (Other)
  Sender: FDA-Public Use
  Company Number: BR-PFIZER INC-2014115920

PATIENT
  Sex: Female

DRUGS (2)
  1. LYRICA [Suspect]
     Indication: PAIN IN EXTREMITY
     Dosage: 1 DF, SINGLE (STRENGTH 75MG)
     Route: 048
  2. LYRICA [Suspect]
     Indication: PAIN

REACTIONS (11)
  - Apparent death [Unknown]
  - Dizziness [Unknown]
  - Tremor [Unknown]
  - Sensory loss [Unknown]
  - Irritability [Unknown]
  - Nervousness [Unknown]
  - Malaise [Unknown]
  - Syncope [Unknown]
  - Feeling abnormal [Unknown]
  - Dysstasia [Unknown]
  - Drug ineffective [Unknown]
